FAERS Safety Report 6666574-5 (Version None)
Quarter: 2010Q2

REPORT INFORMATION
  Report Type: 
  Country: None (occurrence: None)
  Receive Date: 20100404
  Receipt Date: 20100303
  Transmission Date: 20101027
  Serious: No
  Sender: FDA-Public Use
  Company Number: US-BAYER-201012810BCC

PATIENT
  Age: 18 Year
  Sex: Female
  Weight: 51 kg

DRUGS (3)
  1. MIDOL [Suspect]
     Indication: ABDOMINAL DISCOMFORT
     Dosage: TOTAL DAILY DOSE: 220 MG  UNIT DOSE: 220 MG
     Route: 048
     Dates: start: 20100303
  2. ORAL CONTRACEPTIVES [Concomitant]
     Route: 065
     Dates: end: 20100201
  3. ALCOHOL [Concomitant]
     Route: 048
     Dates: start: 20100302

REACTIONS (3)
  - ERYTHEMA [None]
  - RASH MACULAR [None]
  - VOMITING [None]
